FAERS Safety Report 9298469 (Version 2)
Quarter: 2013Q3

REPORT INFORMATION
  Report Type: Spontaneous
  Country: US (occurrence: US)
  Receive Date: 20130520
  Receipt Date: 20130725
  Transmission Date: 20140515
  Serious: Yes (Hospitalization)
  Sender: FDA-Public Use
  Company Number: US-B.I. PHARMACEUTICALS,INC./RIDGEFIELD-2013-BI-13332BP

PATIENT
  Age: 70 Year
  Sex: Male
  Weight: 105.69 kg

DRUGS (18)
  1. SPIRIVA [Suspect]
     Indication: CHRONIC OBSTRUCTIVE PULMONARY DISEASE
     Dosage: 18 MCG
     Route: 055
     Dates: start: 2008
  2. JANUVIA [Concomitant]
     Indication: DIABETES MELLITUS
     Dosage: 50 MG
     Route: 048
     Dates: start: 2007
  3. POTASSIUM [Concomitant]
     Indication: HYPOKALAEMIA
     Dosage: 20 MEQ
     Route: 048
     Dates: start: 1993
  4. AMLODIPINE [Concomitant]
     Indication: HYPERTENSION
     Dosage: 5 MG
     Route: 048
     Dates: start: 2011
  5. LISINOPRIL [Concomitant]
     Indication: HYPERTENSION
     Dosage: 40 MG
     Route: 048
     Dates: start: 1963
  6. METOPROLOL [Concomitant]
     Indication: HYPERTENSION
     Dosage: 100 MG
     Route: 048
     Dates: start: 1963
  7. PRISTIQ [Concomitant]
     Indication: DEPRESSION
     Dosage: 50 MG
     Route: 048
     Dates: start: 2007
  8. ASA [Concomitant]
  9. FISH OIL [Concomitant]
  10. LIPITOR [Concomitant]
  11. LOPRESSOR [Concomitant]
  12. NIACIN [Concomitant]
  13. NORVASC [Concomitant]
  14. KT [Concomitant]
  15. VESICARE [Concomitant]
  16. DEXOXIMETASONE [Concomitant]
  17. COCONUT OIL [Concomitant]
  18. FLOMAX [Concomitant]

REACTIONS (12)
  - Carotid artery occlusion [Recovered/Resolved]
  - Dyspnoea [Recovered/Resolved]
  - Fall [Recovered/Resolved]
  - Balance disorder [Not Recovered/Not Resolved]
  - Dementia [Not Recovered/Not Resolved]
  - Excoriation [Recovered/Resolved]
  - Fall [Recovered/Resolved]
  - Gout [Not Recovered/Not Resolved]
  - Incontinence [Not Recovered/Not Resolved]
  - Facial bones fracture [Recovered/Resolved]
  - Upper limb fracture [Recovered/Resolved]
  - Product quality issue [Unknown]
